FAERS Safety Report 13064042 (Version 1)
Quarter: 2016Q4

REPORT INFORMATION
  Report Type: Spontaneous
  Country: US (occurrence: US)
  Receive Date: 20161227
  Receipt Date: 20161227
  Transmission Date: 20170207
  Serious: No
  Sender: FDA-Public Use
  Company Number: US-PFIZER INC-2016592384

PATIENT
  Sex: Female

DRUGS (1)
  1. XELJANZ [Suspect]
     Active Substance: TOFACITINIB CITRATE
     Dosage: 1 TABLET, DAILY

REACTIONS (21)
  - Off label use [Unknown]
  - Arthralgia [Unknown]
  - Fatigue [Unknown]
  - Vertigo [Unknown]
  - Nausea [Unknown]
  - Joint range of motion decreased [Unknown]
  - Dry mouth [Unknown]
  - Headache [Unknown]
  - Dyspnoea [Unknown]
  - Dry eye [Unknown]
  - Back pain [Unknown]
  - Asthenia [Unknown]
  - Depression [Unknown]
  - Vomiting [Unknown]
  - Dyspepsia [Unknown]
  - Musculoskeletal stiffness [Unknown]
  - Pruritus [Unknown]
  - Weight decreased [Unknown]
  - Oropharyngeal pain [Unknown]
  - Cough [Unknown]
  - Paraesthesia [Unknown]
